FAERS Safety Report 12990877 (Version 1)
Quarter: 2016Q4

REPORT INFORMATION
  Report Type: Other
  Country: US (occurrence: US)
  Receive Date: 20161201
  Receipt Date: 20161201
  Transmission Date: 20170207
  Serious: No
  Sender: FDA-Public Use
  Company Number: US-DUSA PHARMACEUTICALS, INC.-1060296

PATIENT
  Age: 77 Year
  Sex: Female

DRUGS (3)
  1. LEVULAN KERASTICK [Suspect]
     Active Substance: AMINOLEVULINIC ACID HYDROCHLORIDE
     Route: 061
     Dates: start: 20140911, end: 20140911
  2. AMLODIPINE [Concomitant]
     Active Substance: AMLODIPINE BESYLATE
  3. LISINOPRIL. [Concomitant]
     Active Substance: LISINOPRIL

REACTIONS (14)
  - Application site pain [Recovered/Resolved]
  - Application site pain [Recovered/Resolved]
  - Application site scab [Recovered/Resolved]
  - Collagen disorder [Unknown]
  - Pain [Unknown]
  - Headache [Recovered/Resolved]
  - Skin disorder [Unknown]
  - Lacrimation increased [Recovered/Resolved]
  - Feeling abnormal [None]
  - Skin wrinkling [Unknown]
  - Vomiting [Recovered/Resolved]
  - Toothache [Recovered/Resolved]
  - Eye swelling [Recovered/Resolved]
  - Application site exfoliation [Recovered/Resolved]

NARRATIVE: CASE EVENT DATE: 20140911
